FAERS Safety Report 12957654 (Version 1)
Quarter: 2016Q4

REPORT INFORMATION
  Report Type: Spontaneous
  Country: CN (occurrence: CN)
  Receive Date: 20161118
  Receipt Date: 20161118
  Transmission Date: 20170207
  Serious: Yes (Other)
  Sender: FDA-Public Use
  Company Number: CN-MYLANLABS-2016M1049425

PATIENT

DRUGS (1)
  1. CALCITONIN SALMON. [Suspect]
     Active Substance: CALCITONIN SALMON
     Indication: PROPHYLAXIS
     Dosage: 50 IU, QD
     Route: 030
     Dates: start: 20160913, end: 20160913

REACTIONS (7)
  - Chest discomfort [Recovering/Resolving]
  - Chills [Recovering/Resolving]
  - Dizziness [Recovering/Resolving]
  - Flushing [Recovering/Resolving]
  - Nausea [Recovering/Resolving]
  - Hypertension [Recovering/Resolving]
  - Fatigue [Recovering/Resolving]

NARRATIVE: CASE EVENT DATE: 20160913
